FAERS Safety Report 13894536 (Version 1)
Quarter: 2017Q3

REPORT INFORMATION
  Report Type: Spontaneous
  Country: US (occurrence: US)
  Receive Date: 20170816
  Receipt Date: 20170816
  Transmission Date: 20171127
  Serious: Yes (Life-Threatening, Hospitalization)
  Sender: FDA-Public Use
  Company Number: None

PATIENT
  Age: 73 Year
  Sex: Female
  Weight: 51.75 kg

DRUGS (3)
  1. L-LYSINE AMINO ACID [Concomitant]
  2. ERBITUX [Suspect]
     Active Substance: CETUXIMAB
     Indication: COLON CANCER
     Route: 042
     Dates: start: 20170321, end: 20170322
  3. DAILY MULTI-VITAMIN [Concomitant]
     Active Substance: VITAMINS

REACTIONS (2)
  - Infusion related reaction [None]
  - Loss of consciousness [None]

NARRATIVE: CASE EVENT DATE: 20170321
